FAERS Safety Report 5287940-9 (Version None)
Quarter: 2007Q1

REPORT INFORMATION
  Report Type: 
  Country: None (occurrence: None)
  Receive Date: 20070330
  Receipt Date: 20070316
  Transmission Date: 20070707
  Serious: Yes (Other)
  Sender: FDA-Public Use
  Company Number: 2007S1000557

PATIENT
  Age: 46 Year
  Sex: Female

DRUGS (7)
  1. CLOZAPINE [Suspect]
     Indication: BIPOLAR DISORDER
     Dosage: 100 MG; 3 TIMES A DAY; ORAL
     Route: 048
     Dates: start: 20040801, end: 20070111
  2. CLOZAPINE [Suspect]
     Indication: SCHIZOPHRENIA
     Dosage: 100 MG; 3 TIMES A DAY; ORAL
     Route: 048
     Dates: start: 20040801, end: 20070111
  3. PEGASYS [Suspect]
     Indication: HEPATITIS
     Dosage: 180 UG; WEEKLY; SUBCUTANEOUS
     Route: 058
     Dates: start: 20061212
  4. METFORMIN HCL [Concomitant]
  5. TRAZODONE HCL [Concomitant]
  6. RIBAVIRIN [Concomitant]
  7. NORFLOXACIN [Concomitant]

REACTIONS (6)
  - BIPOLAR DISORDER [None]
  - CONDITION AGGRAVATED [None]
  - GRANULOCYTOPENIA [None]
  - INFLUENZA LIKE ILLNESS [None]
  - LEUKOPENIA [None]
  - THROMBOCYTOPENIA [None]
